FAERS Safety Report 19110585 (Version 2)
Quarter: 2021Q2

REPORT INFORMATION
  Report Type: Spontaneous
  Country: US (occurrence: US)
  Receive Date: 20210409
  Receipt Date: 20210422
  Transmission Date: 20210717
  Serious: Yes (Life-Threatening, Hospitalization, Other)
  Sender: FDA-Public Use
  Company Number: US-AUROBINDO-AUR-APL-2021-013964

PATIENT
  Age: 40 Year
  Sex: Male

DRUGS (3)
  1. LOPERAMIDE HYDROCHLORIDE TABLETS 2MG USP (OTC) [Suspect]
     Active Substance: LOPERAMIDE
     Indication: DRUG WITHDRAWAL SYNDROME
     Dosage: 2 MILLIGRAM, DAILY, 100 TABLETS
     Route: 065
  2. DIPHENHYDRAMINE. [Concomitant]
     Active Substance: DIPHENHYDRAMINE
     Indication: PRODUCT USED FOR UNKNOWN INDICATION
     Dosage: UNK
     Route: 065
  3. LOPERAMIDE HYDROCHLORIDE TABLETS 2MG USP (OTC) [Suspect]
     Active Substance: LOPERAMIDE
     Dosage: 100 DOSAGE FORM, ONCE A DAY
     Route: 065

REACTIONS (13)
  - Product use in unapproved indication [Unknown]
  - Ventricular tachycardia [Recovered/Resolved]
  - Pulseless electrical activity [Recovered/Resolved]
  - Overdose [Unknown]
  - Cardiac arrest [Recovered/Resolved]
  - Sinus tachycardia [Recovered/Resolved]
  - Bundle branch block left [Recovered/Resolved]
  - Intentional overdose [Recovered/Resolved]
  - Electrocardiogram QT prolonged [Unknown]
  - Hyperthermia [Recovered/Resolved]
  - Drug abuse [Recovered/Resolved]
  - Mental status changes [Unknown]
  - Torsade de pointes [Recovered/Resolved]
